FAERS Safety Report 7825411-3 (Version None)
Quarter: 2011Q4

REPORT INFORMATION
  Report Type: 
  Country: None (occurrence: None)
  Receive Date: 20111019
  Receipt Date: 20111011
  Transmission Date: 20120403
  Serious: Yes (Other)
  Sender: FDA-Public Use
  Company Number: US-JNJFOC-20111006432

PATIENT

DRUGS (9)
  1. MANNITOL [Concomitant]
     Indication: FLUID REPLACEMENT
     Route: 042
  2. INTERFERON ALFA [Concomitant]
     Indication: PROPHYLAXIS
     Route: 058
  3. METOCLOPRAMIDE [Concomitant]
     Indication: ANTIEMETIC SUPPORTIVE CARE
     Route: 042
  4. DEXAMETHASONE [Concomitant]
     Indication: ANTIEMETIC SUPPORTIVE CARE
     Route: 042
  5. DEXTROSE [Concomitant]
     Indication: FLUID REPLACEMENT
     Route: 042
  6. FUROSEMIDE [Concomitant]
     Indication: FLUID REPLACEMENT
     Route: 042
  7. DOXORUBICIN HCL [Suspect]
     Indication: HEPATIC NEOPLASM MALIGNANT
     Route: 013
  8. CISPLATIN [Suspect]
     Indication: HEPATIC NEOPLASM MALIGNANT
     Route: 042
  9. ZOFRAN [Concomitant]
     Indication: ANTIEMETIC SUPPORTIVE CARE
     Route: 042

REACTIONS (3)
  - OFF LABEL USE [None]
  - BLOOD BILIRUBIN INCREASED [None]
  - MEDICATION ERROR [None]
